FAERS Safety Report 7357625-3 (Version None)
Quarter: 2011Q1

REPORT INFORMATION
  Report Type: 
  Country: None (occurrence: None)
  Receive Date: 20110317
  Receipt Date: 20110311
  Transmission Date: 20110831
  Serious: Yes (Other)
  Sender: FDA-Public Use
  Company Number: IT-AMGEN-ITASP2011013815

PATIENT
  Age: 41 Year
  Sex: Male

DRUGS (6)
  1. DENIBAN [Concomitant]
     Dosage: UNK
     Route: 048
  2. EN [Concomitant]
     Dosage: UNK
     Route: 048
  3. SULAMID [Concomitant]
     Dosage: UNK
     Route: 048
  4. DIAZEPAM [Concomitant]
     Dosage: UNK
     Route: 048
  5. ENBREL [Suspect]
     Indication: PSORIATIC ARTHROPATHY
     Dosage: 50 MG, WEEKLY
     Route: 058
     Dates: start: 20070301, end: 20090401
  6. FELISON [Concomitant]
     Dosage: UNK
     Route: 048

REACTIONS (4)
  - HELICOBACTER GASTRITIS [None]
  - WEIGHT INCREASED [None]
  - DYSLIPIDAEMIA [None]
  - LYMPHOCYTOSIS [None]
